FAERS Safety Report 12237310 (Version 1)
Quarter: 2016Q2

REPORT INFORMATION
  Report Type: Spontaneous
  Country: US (occurrence: None)
  Receive Date: 20160404
  Receipt Date: 20160404
  Transmission Date: 20160815
  Serious: Yes (Other)
  Sender: FDA-Public Use
  Company Number: None

PATIENT
  Age: 34 Year
  Sex: Female

DRUGS (1)
  1. TEMOZOLOMIDE. [Suspect]
     Active Substance: TEMOZOLOMIDE
     Indication: ASTROCYTOMA
     Dosage: DAILY FOR 5 DAYS EVERY 28 DAY CYCLE
     Dates: start: 20151208, end: 20160208

REACTIONS (2)
  - Respiratory tract infection [None]
  - Lymphopenia [None]

NARRATIVE: CASE EVENT DATE: 20160215
